FAERS Safety Report 4688813-2 (Version None)
Quarter: 2005Q2

REPORT INFORMATION
  Report Type: 
  Country: None (occurrence: None)
  Receive Date: 20050613
  Receipt Date: 20050531
  Transmission Date: 20051028
  Serious: Yes (Death)
  Sender: FDA-Public Use
  Company Number: CA-GLAXOSMITHKLINE-A0561486A

PATIENT
  Age: 40 Year
  Sex: Male

DRUGS (7)
  1. PAROXETINE HCL [Suspect]
     Indication: DRUG USE FOR UNKNOWN INDICATION
     Dosage: 20MG PER DAY
     Route: 048
  2. CARBAMAZEPINE [Suspect]
     Indication: DRUG USE FOR UNKNOWN INDICATION
     Dosage: 600MG UNKNOWN
     Route: 065
  3. FLUANXOL [Suspect]
     Indication: DRUG USE FOR UNKNOWN INDICATION
     Route: 065
  4. PROCYCLIDINE HYDROCHLORIDE 5MG TAB [Concomitant]
  5. QUETIAPINE [Concomitant]
  6. RISPERIDONE [Concomitant]
  7. ZUCLOPENTHIXOL [Concomitant]

REACTIONS (2)
  - DEATH [None]
  - NEUROLEPTIC MALIGNANT SYNDROME [None]
